FAERS Safety Report 24954732 (Version 1)
Quarter: 2025Q1

REPORT INFORMATION
  Report Type: Spontaneous
  Country: US (occurrence: US)
  Receive Date: 20250211
  Receipt Date: 20250211
  Transmission Date: 20250409
  Serious: Yes (Death, Life-Threatening, Hospitalization, Other)
  Sender: UNICHEM
  Company Number: US-UNICHEM LABORATORIES LIMITED-UNI-2025-US-000228

PATIENT

DRUGS (1)
  1. LAMOTRIGINE [Suspect]
     Active Substance: LAMOTRIGINE
     Indication: Product used for unknown indication
     Route: 065

REACTIONS (8)
  - Cardiac arrest [Fatal]
  - Shock haemorrhagic [Unknown]
  - Renal failure [Unknown]
  - Hepatic failure [Unknown]
  - Stress cardiomyopathy [Unknown]
  - Subdural haematoma [Unknown]
  - Encephalitis [Unknown]
  - Haemophagocytic lymphohistiocytosis [Unknown]
